FAERS Safety Report 13946748 (Version 2)
Quarter: 2017Q3

REPORT INFORMATION
  Report Type: Report from Study
  Country: US (occurrence: US)
  Receive Date: 20170907
  Receipt Date: 20170925
  Transmission Date: 20171128
  Serious: Yes (Hospitalization, Other)
  Sender: FDA-Public Use
  Company Number: PHHO2017US012448

PATIENT
  Age: 72 Year
  Sex: Male
  Weight: 68.93 kg

DRUGS (5)
  1. GLIMEPIRIDE. [Suspect]
     Active Substance: GLIMEPIRIDE
     Indication: DIABETES MELLITUS
     Dosage: 2 MG, QD
     Route: 048
     Dates: start: 201704, end: 20170826
  2. HYDROXYCHLOROQUINE [Suspect]
     Active Substance: HYDROXYCHLOROQUINE
     Indication: METASTATIC MALIGNANT MELANOMA
     Dosage: 600MG/400MGUNK
     Route: 048
     Dates: start: 20170814, end: 20170826
  3. PREDNISONE. [Concomitant]
     Active Substance: PREDNISONE
     Indication: HYPOPHYSITIS
     Dosage: 10 MG, QD
     Route: 048
     Dates: start: 201601
  4. GSK1120212 [Suspect]
     Active Substance: TRAMETINIB
     Indication: METASTATIC MALIGNANT MELANOMA
     Dosage: 1.5 MG, QD
     Route: 048
     Dates: start: 20170728, end: 20170824
  5. GSK2118436 [Suspect]
     Active Substance: DABRAFENIB
     Indication: METASTATIC MALIGNANT MELANOMA
     Dosage: 100 MG, BID
     Route: 048
     Dates: start: 20170728, end: 20170824

REACTIONS (2)
  - Dehydration [Unknown]
  - Hypoglycaemia [Recovered/Resolved]

NARRATIVE: CASE EVENT DATE: 20170827
